FAERS Safety Report 6447323-2 (Version None)
Quarter: 2009Q4

REPORT INFORMATION
  Report Type: 
  Country: None (occurrence: None)
  Receive Date: 20091119
  Receipt Date: 20091113
  Transmission Date: 20100525
  Serious: Yes (Other)
  Sender: FDA-Public Use
  Company Number: CHPA2009US22080

PATIENT
  Sex: Female
  Weight: 163.27 kg

DRUGS (1)
  1. MYOFLEX ANALGESIC CREME (NCH) [Suspect]
     Indication: BACK PAIN
     Dosage: UNK, ONCE/SINGLE
     Route: 061
     Dates: start: 20091105, end: 20091105

REACTIONS (7)
  - APPLICATION SITE PAIN [None]
  - ARTHRALGIA [None]
  - HYPERSENSITIVITY [None]
  - JOINT SWELLING [None]
  - OEDEMA PERIPHERAL [None]
  - PARAESTHESIA [None]
  - RASH GENERALISED [None]
